FAERS Safety Report 6835438-6 (Version None)
Quarter: 2010Q3

REPORT INFORMATION
  Report Type: 
  Country: None (occurrence: None)
  Receive Date: 20100713
  Receipt Date: 20100625
  Transmission Date: 20110219
  Serious: No
  Sender: FDA-Public Use
  Company Number: US-B.I. PHARMACEUTICALS,INC./RIDGEFIELD-2010-BP-07251BP

PATIENT
  Sex: Male

DRUGS (4)
  1. CATAPRES-TTS-1 [Suspect]
     Indication: HYPERTENSION
     Dosage: 0.6 MG
     Route: 061
     Dates: start: 20070101, end: 20100401
  2. COREG [Concomitant]
     Dosage: 40 MG
     Route: 048
  3. DIOVAN [Concomitant]
  4. CLONIDINE (MYLAR) [Concomitant]
     Indication: HYPERTENSION

REACTIONS (6)
  - APPLICATION SITE ERYTHEMA [None]
  - APPLICATION SITE PAPULES [None]
  - APPLICATION SITE PRURITUS [None]
  - HYPERAESTHESIA [None]
  - PRURITUS [None]
  - RASH [None]
